FAERS Safety Report 5303618-7 (Version None)
Quarter: 2007Q2

REPORT INFORMATION
  Report Type: 
  Country: None (occurrence: None)
  Receive Date: 20070420
  Receipt Date: 20070412
  Transmission Date: 20071010
  Serious: Yes (Death, Other)
  Sender: FDA-Public Use
  Company Number: FR-PFIZER INC-2007023792

PATIENT
  Sex: Male
  Weight: 75 kg

DRUGS (5)
  1. LYRICA [Suspect]
     Indication: NEURALGIA
  2. LYRICA [Suspect]
  3. HEXAQUINE [Concomitant]
     Indication: NEURALGIA
     Route: 048
  4. HEXAQUINE [Concomitant]
     Indication: MUSCLE SPASMS
  5. AMLOR [Concomitant]
     Indication: HYPERTENSION
     Route: 048

REACTIONS (2)
  - CARDIAC ARREST [None]
  - LEFT VENTRICULAR FAILURE [None]
